FAERS Safety Report 15938227 (Version 1)
Quarter: 2019Q1

REPORT INFORMATION
  Report Type: Spontaneous
  Country: US (occurrence: US)
  Receive Date: 20190208
  Receipt Date: 20190208
  Transmission Date: 20190417
  Serious: Yes (Other)
  Sender: FDA-Public Use
  Company Number: US-ROCHE-2194946

PATIENT
  Sex: Female
  Weight: 70.37 kg

DRUGS (1)
  1. XOLAIR [Suspect]
     Active Substance: OMALIZUMAB
     Indication: ASTHMA
     Dosage: ONGOING: NO
     Route: 065
     Dates: start: 20170831, end: 20180820

REACTIONS (2)
  - Incorrect route of product administration [Unknown]
  - Pulmonary hypertension [Recovering/Resolving]
